FAERS Safety Report 8379881-5 (Version None)
Quarter: 2012Q2

REPORT INFORMATION
  Report Type: 
  Country: None (occurrence: None)
  Receive Date: 20120523
  Receipt Date: 20120516
  Transmission Date: 20120825
  Serious: Yes (Hospitalization, Other)
  Sender: FDA-Public Use
  Company Number: FR-PFIZER INC-2012118682

PATIENT
  Age: 65 Year
  Sex: Female

DRUGS (6)
  1. OMEPRAZOLE [Concomitant]
     Dosage: 20 MG, 1X/DAY
     Route: 048
  2. CYMBALTA [Concomitant]
     Dosage: 30 MG, 1X/DAY
     Route: 048
  3. ART 50 [Concomitant]
     Dosage: UNK
     Route: 048
  4. LYRICA [Suspect]
     Dosage: 75 MG, 2X/DAY
     Route: 048
     Dates: end: 20120416
  5. PLAVIX [Concomitant]
     Dosage: 75 MG, 1X/DAY
     Route: 048
  6. LIORESAL [Suspect]
     Dosage: 10 MG, 1X/DAY
     Route: 048
     Dates: end: 20120416

REACTIONS (2)
  - GENERALISED OEDEMA [None]
  - OEDEMA PERIPHERAL [None]
